FAERS Safety Report 9698680 (Version 1)
Quarter: 2013Q4

REPORT INFORMATION
  Report Type: Spontaneous
  Country: JP (occurrence: JP)
  Receive Date: 20131120
  Receipt Date: 20131120
  Transmission Date: 20140711
  Serious: Yes (Hospitalization)
  Sender: FDA-Public Use
  Company Number: JP-BRISTOL-MYERS SQUIBB COMPANY-19815976

PATIENT
  Age: 36 Year
  Sex: Male

DRUGS (7)
  1. METGLUCO [Suspect]
     Indication: DIABETES MELLITUS
     Route: 048
     Dates: start: 20130912
  2. AMARYL [Concomitant]
     Route: 048
  3. ARTIST [Concomitant]
     Route: 048
  4. CRESTOR [Concomitant]
     Route: 048
  5. JANUVIA [Concomitant]
     Route: 048
  6. ENALAPRIL MALEATE [Concomitant]
     Route: 048
  7. RABEPRAZOLE SODIUM [Concomitant]
     Route: 048

REACTIONS (1)
  - Thrombocytopenia [Recovered/Resolved]
